FAERS Safety Report 14194432 (Version 1)
Quarter: 2017Q4

REPORT INFORMATION
  Report Type: Spontaneous
  Country: US (occurrence: US)
  Receive Date: 20171115
  Receipt Date: 20171115
  Transmission Date: 20180321
  Serious: Yes (Life-Threatening, Hospitalization, Other)
  Sender: FDA-Public Use
  Company Number: None

PATIENT
  Age: 15 Year
  Sex: Male
  Weight: 72 kg

DRUGS (4)
  1. TRETONOIN 0.1 % [Concomitant]
     Active Substance: TRETINOIN
  2. DOXYCYCLINE HYDRATE [Suspect]
     Active Substance: DOXYCYCLINE HYCLATE
     Indication: ACNE
     Dosage: ?          OTHER FREQUENCY:150 MG A DAY;?
     Route: 048
     Dates: start: 20160801, end: 20171102
  3. CLINDAMYCIN. [Concomitant]
     Active Substance: CLINDAMYCIN
  4. PROBIOTICS [Concomitant]
     Active Substance: PROBIOTICS NOS

REACTIONS (2)
  - Suicide attempt [None]
  - Overdose [None]

NARRATIVE: CASE EVENT DATE: 20171102
